FAERS Safety Report 8956608 (Version 2)
Quarter: 2013Q1

REPORT INFORMATION
  Report Type: Spontaneous
  Country: JP (occurrence: JP)
  Receive Date: 20121210
  Receipt Date: 20130118
  Transmission Date: 20140127
  Serious: Yes (Other)
  Sender: FDA-Public Use
  Company Number: JP-JNJFOC-20121201178

PATIENT
  Age: 30 Year
  Sex: Male

DRUGS (3)
  1. REMICADE [Suspect]
     Indication: CROHN^S DISEASE
     Route: 042
     Dates: start: 201102
  2. REMICADE [Suspect]
     Indication: CROHN^S DISEASE
     Route: 042
     Dates: start: 201202
  3. MESALAZINE [Suspect]
     Indication: CROHN^S DISEASE
     Route: 065
     Dates: start: 201102

REACTIONS (3)
  - Takayasu^s arteritis [Recovering/Resolving]
  - Intestinal obstruction [Recovering/Resolving]
  - Ileal stenosis [Recovering/Resolving]
